FAERS Safety Report 7630796-7 (Version None)
Quarter: 2011Q3

REPORT INFORMATION
  Report Type: 
  Country: None (occurrence: None)
  Receive Date: 20110723
  Receipt Date: 20110711
  Transmission Date: 20111222
  Serious: Yes (Hospitalization, Other)
  Sender: FDA-Public Use
  Company Number: FR-ELI_LILLY_AND_COMPANY-FR201106004487

PATIENT
  Age: 77 Year
  Sex: Female
  Weight: 64 kg

DRUGS (2)
  1. RALOXIFENE [Suspect]
     Indication: OSTEOPOROSIS
     Dosage: 60 MG, QD
     Route: 048
     Dates: start: 20060101, end: 20110423
  2. ATORVASTATIN CALCIUM [Concomitant]
     Indication: HYPERCHOLESTEROLAEMIA
     Dosage: 20 MG, QD
     Dates: start: 20000101

REACTIONS (5)
  - DIABETES MELLITUS [None]
  - PHLEBITIS [None]
  - THROMBOPHLEBITIS SUPERFICIAL [None]
  - TROUSSEAU'S SYNDROME [None]
  - PULMONARY EMBOLISM [None]
